FAERS Safety Report 4338012-9 (Version None)
Quarter: 2004Q2

REPORT INFORMATION
  Report Type: 
  Country: None (occurrence: None)
  Receive Date: 20040407
  Receipt Date: 20040319
  Transmission Date: 20050107
  Serious: Yes (Life-Threatening)
  Sender: FDA-Public Use
  Company Number: JP_040302767

PATIENT
  Age: 58 Year
  Sex: Male
  Weight: 70 kg

DRUGS (8)
  1. EXAL (VINBLASTINE SULFATE) [Suspect]
     Indication: HODGKIN'S DISEASE
     Dosage: 10 MG OTHER
     Route: 050
     Dates: start: 20040129, end: 20040227
  2. ADRIAMYCIN (DOXORUBICIN) [Concomitant]
  3. BLEO (BLEOMYCIN HYDROCHLORIDE) [Concomitant]
  4. DACARBAZINE [Concomitant]
  5. PRIMAXIN [Concomitant]
  6. KEITEN (CEFPIROME SULFATE) [Concomitant]
  7. VANCOMYCIN HYDROCHLORIDE [Concomitant]
  8. DIFLUCAN [Concomitant]

REACTIONS (3)
  - DRUG ERUPTION [None]
  - STEVENS-JOHNSON SYNDROME [None]
  - TOXIC EPIDERMAL NECROLYSIS [None]
